FAERS Safety Report 23034645 (Version 1)
Quarter: 2023Q4

REPORT INFORMATION
  Report Type: Spontaneous
  Country: US (occurrence: US)
  Receive Date: 20231005
  Receipt Date: 20231005
  Transmission Date: 20240110
  Serious: Yes (Death)
  Sender: FDA-Public Use
  Company Number: US-PHARMAAND-2023PHR00134

PATIENT
  Age: 60 Year
  Sex: Male

DRUGS (1)
  1. RUBRACA [Suspect]
     Active Substance: RUCAPARIB CAMSYLATE
     Indication: Prostate cancer
     Dosage: 600 MILLIGRAM, BID
     Route: 065
     Dates: start: 20230313, end: 202309

REACTIONS (1)
  - Prostate cancer [Fatal]

NARRATIVE: CASE EVENT DATE: 20230907
